FAERS Safety Report 5133212-2 (Version None)
Quarter: 2006Q4

REPORT INFORMATION
  Report Type: 
  Country: None (occurrence: None)
  Receive Date: 20061018
  Receipt Date: 20061002
  Transmission Date: 20070319
  Serious: Yes (Hospitalization, Other)
  Sender: FDA-Public Use
  Company Number: 2006-06-0751

PATIENT
  Age: 53 Year
  Sex: Male
  Weight: 89 kg

DRUGS (3)
  1. PEG-INTRON [Suspect]
     Indication: HEPATITIS C
     Dosage: 150 MCG; WK; SC
     Route: 058
     Dates: start: 20060330, end: 20060707
  2. REBETOL [Suspect]
     Indication: HEPATITIS C
     Dosage: 1200 MG; QD; PO
     Route: 048
     Dates: start: 20060330, end: 20060707
  3. ANTIHYPERTENSIVE AGENT (NOS) [Concomitant]

REACTIONS (6)
  - ACCIDENT AT WORK [None]
  - DEHYDRATION [None]
  - DIZZINESS [None]
  - FALL [None]
  - FLUID INTAKE REDUCED [None]
  - PANCYTOPENIA [None]
